FAERS Safety Report 24353208 (Version 1)
Quarter: 2024Q3

REPORT INFORMATION
  Report Type: Spontaneous
  Country: RU (occurrence: RU)
  Receive Date: 20240923
  Receipt Date: 20240923
  Transmission Date: 20241016
  Serious: No
  Sender: ROCHE
  Company Number: RU-ROCHE-3457077

PATIENT
  Age: 63 Year

DRUGS (2)
  1. TRASTUZUMAB [Suspect]
     Active Substance: TRASTUZUMAB
     Indication: Breast cancer
     Route: 065
  2. ZOLEDRONIC ACID [Concomitant]
     Active Substance: ZOLEDRONIC ACID
     Route: 042

REACTIONS (3)
  - Hepatic cyst [Unknown]
  - Haemangioma of liver [Unknown]
  - Renal cyst [Unknown]

NARRATIVE: CASE EVENT DATE: 20230322
